FAERS Safety Report 5065412-4 (Version None)
Quarter: 2006Q3

REPORT INFORMATION
  Report Type: 
  Country: None (occurrence: None)
  Receive Date: 20060731
  Receipt Date: 20060721
  Transmission Date: 20061208
  Serious: Yes (Other)
  Sender: FDA-Public Use
  Company Number: PHBS2006RU11038

PATIENT
  Sex: Female

DRUGS (1)
  1. ELIDEL [Suspect]
     Dosage: UNK, BID
     Route: 061

REACTIONS (2)
  - PYODERMA [None]
  - RASH PUSTULAR [None]
